FAERS Safety Report 8099333-X (Version None)
Quarter: 2012Q1

REPORT INFORMATION
  Report Type: 
  Country: None (occurrence: None)
  Receive Date: 20120131
  Receipt Date: 20120124
  Transmission Date: 20120608
  Serious: No
  Sender: FDA-Public Use
  Company Number: US-PFIZER INC-2012008496

PATIENT
  Sex: Female

DRUGS (2)
  1. PENICILLIN G BENZATHINE AND PENICILLIN G PROCAINE [Suspect]
     Dosage: UNK
  2. MUCINEX [Suspect]
     Dosage: UNK

REACTIONS (1)
  - NO ADVERSE EVENT [None]
